FAERS Safety Report 5163767-3 (Version None)
Quarter: 2006Q4

REPORT INFORMATION
  Report Type: 
  Country: None (occurrence: None)
  Receive Date: 20061127
  Receipt Date: 20061127
  Transmission Date: 20070319
  Serious: No
  Sender: FDA-Public Use
  Company Number: None

PATIENT
  Age: 23 Year
  Sex: Female
  Weight: 54.4316 kg

DRUGS (1)
  1. IMIPRAMINE [Suspect]
     Indication: DEPRESSION
     Dosage: 25-150 MG. PER DAY DAILY PO
     Route: 048

REACTIONS (9)
  - ASTHENIA [None]
  - BALANCE DISORDER [None]
  - BENIGN NEOPLASM [None]
  - DIZZINESS [None]
  - FEELING ABNORMAL [None]
  - HEART RATE ABNORMAL [None]
  - NERVOUS SYSTEM DISORDER [None]
  - PHOTOPHOBIA [None]
  - VISUAL DISTURBANCE [None]
